FAERS Safety Report 8611621-4 (Version None)
Quarter: 2012Q3

REPORT INFORMATION
  Report Type: 
  Country: None (occurrence: None)
  Receive Date: 20120822
  Receipt Date: 20120815
  Transmission Date: 20120928
  Serious: Yes (Hospitalization)
  Sender: FDA-Public Use
  Company Number: MX-ABBOTT-12P-107-0968862-00

PATIENT
  Sex: Male
  Weight: 61 kg

DRUGS (5)
  1. HUMIRA [Suspect]
     Indication: RHEUMATOID ARTHRITIS
     Route: 058
     Dates: start: 20120401, end: 20120714
  2. OMEPRAZOLE [Concomitant]
     Indication: GASTRITIS PROPHYLAXIS
     Route: 048
     Dates: end: 20120714
  3. SULLNDAC [Concomitant]
     Indication: RHEUMATOID ARTHRITIS
     Dosage: EVERY 8 HOURS
     Route: 048
     Dates: end: 20120714
  4. ACETAMINOPHEN [Concomitant]
     Indication: PAIN
     Dosage: EVERY 6 HOURS
     Route: 048
     Dates: end: 20120714
  5. DICLOFENAC SODIUM [Concomitant]
     Indication: RHEUMATOID ARTHRITIS
     Dosage: EVERY 8 HOURS
     Route: 048
     Dates: end: 20120714

REACTIONS (6)
  - HICCUPS [None]
  - WEIGHT DECREASED [None]
  - GASTROOESOPHAGEAL REFLUX DISEASE [None]
  - LOCALISED INTRAABDOMINAL FLUID COLLECTION [None]
  - NAUSEA [None]
  - VOMITING [None]
